FAERS Safety Report 8962693 (Version 1)
Quarter: 2012Q4

REPORT INFORMATION
  Report Type: 
  Country: US (occurrence: US)
  Receive Date: 20121213
  Receipt Date: 20121213
  Transmission Date: 20130627
  Serious: No
  Sender: FDA-Public Use
  Company Number: US-PFIZER INC-2012311524

PATIENT
  Age: 65 Year
  Sex: Female

DRUGS (13)
  1. SUTENT [Suspect]
     Indication: CARCINOMA KIDNEY
     Dosage: 50 mg, UNK
     Dates: start: 20121106
  2. ZOFRAN [Concomitant]
     Dosage: UNK
  3. PROMETHAZINE HYDROCHLORIDE [Concomitant]
     Dosage: UNK
  4. VITAMIN D3 [Concomitant]
     Dosage: UNK
  5. METOPROLOL SUCCINATE [Concomitant]
     Dosage: UNK
  6. TEMAZEPAM [Concomitant]
     Dosage: UNK
  7. IRON [Concomitant]
     Dosage: UNK
  8. RESTORIL [Concomitant]
     Dosage: UNK
  9. HEPARIN LOCK FLUSH [Concomitant]
     Dosage: UNK
  10. SEVELAMER [Concomitant]
     Dosage: UNK
  11. GRANISETRON HYDROCHLORIDE [Concomitant]
     Dosage: UNK
  12. PROZAC [Concomitant]
     Dosage: UNK
  13. EPOGEN [Concomitant]
     Dosage: UNK

REACTIONS (1)
  - Nausea [Unknown]
